FAERS Safety Report 19062529 (Version 3)
Quarter: 2021Q3

REPORT INFORMATION
  Report Type: Spontaneous
  Country: NL (occurrence: NL)
  Receive Date: 20210326
  Receipt Date: 20210713
  Transmission Date: 20211014
  Serious: Yes (Death, Life-Threatening)
  Sender: FDA-Public Use
  Company Number: NL-PFIZER INC-2021317704

PATIENT
  Age: 83 Year
  Sex: Female
  Weight: 50 kg

DRUGS (15)
  1. PEANUT OIL. [Concomitant]
     Active Substance: PEANUT OIL
     Dosage: UNK, CYCLIC
  2. COLECALCIFEROL [Concomitant]
     Active Substance: CHOLECALCIFEROL
     Dosage: 5600 IU
  3. MORFINE [Concomitant]
     Active Substance: MORPHINE
     Dosage: 10 MG, DAILY
  4. MICROLAX [SODIUM CITRATE;SODIUM LAURYL SULFOACETATE] [Concomitant]
     Dosage: 5 ML, AS NEEDED
     Dates: end: 20210401
  5. VITAMIN D3 [Concomitant]
     Active Substance: CHOLECALCIFEROL
     Dosage: UNK, WEEKLY
  6. SODIUM LAURYL SULFOACETATE [Concomitant]
     Active Substance: SODIUM LAURYL SULFOACETATE
     Dosage: 9 MG/ML
  7. ZINC. [Concomitant]
     Active Substance: ZINC
     Indication: CONSTIPATION
  8. PARACETAMOL [Concomitant]
     Active Substance: ACETAMINOPHEN
     Dosage: 500 MG, AS NEEDED
     Dates: end: 20201122
  9. CLOBETASOL [Concomitant]
     Active Substance: CLOBETASOL
     Dosage: 0.5MG/G
  10. DERMOVATE [Concomitant]
     Active Substance: CLOBETASOL
     Indication: PSORIASIS
     Dosage: UNK, CYCLIC
  11. COMIRNATY [Suspect]
     Active Substance: TOZINAMERAN
     Indication: COVID-19 IMMUNISATION
     Dosage: DOSE 2, SINGLE
     Dates: start: 20210224, end: 20210224
  12. PREDNISOLONE [PREDNISOLONE ACETATE] [Concomitant]
     Active Substance: PREDNISOLONE ACETATE
     Dosage: 2.5 MG, DAILY
  13. LACTULOSE. [Concomitant]
     Active Substance: LACTULOSE
     Dosage: 670 MG/ML, DAILY
  14. BEPANTHEN [PANTHENOL] [Concomitant]
     Dosage: UNK, DAILY
  15. SORBITOL ENEMA [Concomitant]
     Dosage: 9/625MG/ML

REACTIONS (10)
  - Pyrexia [Fatal]
  - Vaccination site swelling [Fatal]
  - Peripheral swelling [Fatal]
  - Depressed level of consciousness [Fatal]
  - Fatigue [Fatal]
  - Malaise [Fatal]
  - Autoimmune disorder [Fatal]
  - Tic [Fatal]
  - Heart rate increased [Fatal]
  - Dementia Alzheimer^s type [Fatal]

NARRATIVE: CASE EVENT DATE: 20210225
